FAERS Safety Report 8928226 (Version 1)
Quarter: 2012Q4

REPORT INFORMATION
  Report Type: Spontaneous
  Country: US (occurrence: None)
  Receive Date: 20121120
  Receipt Date: 20121120
  Transmission Date: 20130627
  Serious: Yes (Other)
  Sender: FDA-Public Use
  Company Number: 2012110014

PATIENT
  Age: 56 Year
  Sex: Female
  Weight: 92.99 kg

DRUGS (2)
  1. FELABATOL [Suspect]
     Indication: EPILEPSY
     Dosage: 3600 mg (1800 mg, 2 in 1 D) , Oral
     Route: 048
     Dates: start: 2010, end: 20121028
  2. FELABATOL [Suspect]
     Indication: EPILEPSY
     Route: 048
     Dates: start: 2010, end: 20121028

REACTIONS (2)
  - Grand mal convulsion [None]
  - Drug dose omission [None]
